APPROVED DRUG PRODUCT: FLUDARABINE PHOSPHATE
Active Ingredient: FLUDARABINE PHOSPHATE
Strength: 50MG/2ML (25MG/ML)
Dosage Form/Route: INJECTABLE;INJECTION
Application: A200647 | Product #001
Applicant: EXTROVIS AG
Approved: Dec 21, 2011 | RLD: No | RS: No | Type: DISCN